FAERS Safety Report 17426850 (Version 2)
Quarter: 2020Q2

REPORT INFORMATION
  Report Type: Spontaneous
  Country: NL (occurrence: NL)
  Receive Date: 20200217
  Receipt Date: 20200523
  Transmission Date: 20200713
  Serious: Yes (Life-Threatening)
  Sender: FDA-Public Use
  Company Number: NL-ROCHE-2545322

PATIENT
  Age: 62 Year
  Sex: Female
  Weight: 58 kg

DRUGS (14)
  1. REMSIMA [Suspect]
     Active Substance: INFLIXIMAB
     Indication: RHEUMATOID ARTHRITIS
     Route: 065
     Dates: start: 2016
  2. PREDNISONE. [Concomitant]
     Active Substance: PREDNISONE
     Route: 065
  3. IMURAN [Concomitant]
     Active Substance: AZATHIOPRINE
     Route: 065
  4. TOFACITINIB [Suspect]
     Active Substance: TOFACITINIB
     Route: 065
     Dates: start: 2017
  5. RITUXIMAB. [Suspect]
     Active Substance: RITUXIMAB
     Indication: RHEUMATOID ARTHRITIS
     Route: 042
     Dates: start: 2018
  6. TOCILIZUMAB. [Suspect]
     Active Substance: TOCILIZUMAB
     Indication: RHEUMATOID ARTHRITIS
     Dosage: STRENGTH: 180 MG/ML (MILLIGRAM PER MILLILITER)
     Route: 058
     Dates: start: 2017
  7. PLAQUENIL [Concomitant]
     Active Substance: HYDROXYCHLOROQUINE SULFATE
     Route: 065
  8. ABATACEPT [Suspect]
     Active Substance: ABATACEPT
     Indication: RHEUMATOID ARTHRITIS
     Dosage: 125 MG/ML (MILLIGRAM PER MILLILITER),
     Route: 065
     Dates: start: 2015
  9. TOFACITINIB [Suspect]
     Active Substance: TOFACITINIB
     Indication: RHEUMATOID ARTHRITIS
     Route: 065
     Dates: start: 2017
  10. GOLD [Concomitant]
     Active Substance: GOLD
     Route: 065
  11. HUMIRA [Suspect]
     Active Substance: ADALIMUMAB
     Indication: RHEUMATOID ARTHRITIS
     Dosage: STRENGTH: 100 MG/ML (MILLIGRAM PER MILLILITER)
     Route: 065
     Dates: start: 201501
  12. ENBREL [Suspect]
     Active Substance: ETANERCEPT
     Indication: RHEUMATOID ARTHRITIS
     Dosage: STRENGTH: 50 MG/ML (MILLIGRAM PER MILLILITER), 1-3 TIMES IN WEEK
     Route: 065
     Dates: start: 201507
  13. ARAVA [Concomitant]
     Active Substance: LEFLUNOMIDE
     Route: 065
  14. METHOTREXATE. [Concomitant]
     Active Substance: METHOTREXATE
     Route: 065

REACTIONS (3)
  - Off label use [Unknown]
  - Treatment failure [Unknown]
  - Neuroendocrine carcinoma metastatic [Not Recovered/Not Resolved]

NARRATIVE: CASE EVENT DATE: 201507
